FAERS Safety Report 5139697-X (Version None)
Quarter: 2006Q4

REPORT INFORMATION
  Report Type: 
  Country: None (occurrence: None)
  Receive Date: 20061024
  Receipt Date: 20061011
  Transmission Date: 20070319
  Serious: Yes (Death, Life-Threatening)
  Sender: FDA-Public Use
  Company Number: 2006JP003231

PATIENT
  Age: 76 Year
  Sex: Female
  Weight: 35 kg

DRUGS (12)
  1. TACROLIMUS CAPSULES (TACROLIMUS CAPSULES) [Suspect]
     Indication: RHEUMATOID ARTHRITIS
     Dosage: 1.5 MG/D, ORAL
     Route: 048
     Dates: start: 20060530, end: 20060828
  2. PREDNISOLONE [Concomitant]
  3. VOLTAREN CAPSULE [Concomitant]
  4. VOLTAREN [Concomitant]
  5. LANSOPRAZOLE [Concomitant]
  6. AMLODIPINE BESYLATE [Concomitant]
  7. NEUQUINON (UBIDECARENONE) [Concomitant]
  8. ONEALFA (ALFACALCIDOL) [Concomitant]
  9. FOSAMAC (ALENDRONATE SODIUM) [Concomitant]
  10. MUCOSOLVAN L (AMBROXOL HYDROCHLORIDE) [Concomitant]
  11. LAC B (LACTOBACILLUS BIFIDUS, LYOPHILIZED) [Concomitant]
  12. RACOL SOLUTION [Concomitant]

REACTIONS (12)
  - ACUTE RESPIRATORY FAILURE [None]
  - BLOOD CREATININE INCREASED [None]
  - BLOOD PH DECREASED [None]
  - BLOOD UREA INCREASED [None]
  - DECREASED APPETITE [None]
  - INFECTED SKIN ULCER [None]
  - JOINT SPRAIN [None]
  - LIGAMENT INJURY [None]
  - RESTLESSNESS [None]
  - SEPTIC SHOCK [None]
  - STAPHYLOCOCCAL INFECTION [None]
  - TACHYPNOEA [None]
